FAERS Safety Report 8986278 (Version 5)
Quarter: 2013Q4

REPORT INFORMATION
  Report Type: Report from Study
  Country: CA (occurrence: CA)
  Receive Date: 20121226
  Receipt Date: 20131230
  Transmission Date: 20140711
  Serious: Yes (Hospitalization, Other)
  Sender: FDA-Public Use
  Company Number: CA-ROCHE-1170080

PATIENT
  Age: 71 Year
  Sex: Female

DRUGS (6)
  1. OMALIZUMAB [Suspect]
     Indication: ASTHMA
     Route: 058
     Dates: start: 20080626
  2. OMALIZUMAB [Suspect]
     Route: 058
     Dates: start: 20090409
  3. OMALIZUMAB [Suspect]
     Route: 065
     Dates: start: 20130530
  4. ADVAIR [Concomitant]
     Route: 065
  5. VENTOLINE [Concomitant]
  6. SINGULAIR [Concomitant]

REACTIONS (9)
  - Bronchitis [Unknown]
  - Pneumonia [Not Recovered/Not Resolved]
  - Viral infection [Unknown]
  - Productive cough [Unknown]
  - Sputum discoloured [Unknown]
  - Fatigue [Unknown]
  - Heart rate increased [Unknown]
  - Nasopharyngitis [Unknown]
  - Influenza [Recovering/Resolving]
